FAERS Safety Report 22902500 (Version 3)
Quarter: 2023Q4

REPORT INFORMATION
  Report Type: Report from Study
  Country: CA (occurrence: CA)
  Receive Date: 20230904
  Receipt Date: 20231129
  Transmission Date: 20240109
  Serious: Yes (Other)
  Sender: FDA-Public Use
  Company Number: CA-TAKEDA-2023TUS056774

PATIENT
  Age: 42 Year
  Sex: Female

DRUGS (4)
  1. VEDOLIZUMAB [Suspect]
     Active Substance: VEDOLIZUMAB
     Indication: Colitis ulcerative
     Dosage: 300 MILLIGRAM
     Route: 042
     Dates: start: 20230315
  2. VEDOLIZUMAB [Suspect]
     Active Substance: VEDOLIZUMAB
     Indication: Colitis ulcerative
     Dosage: 108 MILLIGRAM, Q2WEEKS
     Route: 058
     Dates: start: 20230619
  3. Salofalk [Concomitant]
     Dosage: UNK UNK, QD
     Route: 048
     Dates: start: 199904
  4. SULFASALAZINE [Concomitant]
     Active Substance: SULFASALAZINE
     Dosage: UNK
     Dates: start: 202201

REACTIONS (4)
  - Colitis ulcerative [Not Recovered/Not Resolved]
  - Anorectal discomfort [Unknown]
  - Conjunctivitis [Unknown]
  - Stress [Unknown]

NARRATIVE: CASE EVENT DATE: 20230814
